FAERS Safety Report 4744626-4 (Version None)
Quarter: 2005Q3

REPORT INFORMATION
  Report Type: 
  Country: None (occurrence: None)
  Receive Date: 20050811
  Receipt Date: 20041004
  Transmission Date: 20060218
  Serious: Yes (Hospitalization)
  Sender: FDA-Public Use
  Company Number: K200401490

PATIENT
  Age: 3 Year
  Sex: Female

DRUGS (1)
  1. SEPTRA [Suspect]

REACTIONS (1)
  - HYPERSENSITIVITY [None]
